FAERS Safety Report 13849359 (Version 1)
Quarter: 2017Q3

REPORT INFORMATION
  Report Type: Spontaneous
  Country: US (occurrence: US)
  Receive Date: 20170809
  Receipt Date: 20170809
  Transmission Date: 20171127
  Serious: No
  Sender: FDA-Public Use
  Company Number: US-LUPIN PHARMACEUTICALS INC.-E2B_00007267

PATIENT
  Sex: Female
  Weight: 58.97 kg

DRUGS (3)
  1. LEVETIRACETAM TABLETS USP, 500 MG [Suspect]
     Active Substance: LEVETIRACETAM
     Dosage: 2 GRAM IN THE AM AND 2 GRAMS IN THE PM
     Route: 048
  2. VIMPAT [Concomitant]
     Active Substance: LACOSAMIDE
     Indication: PRODUCT USED FOR UNKNOWN INDICATION
     Dosage: UNK UNK,UNK,UNKNOWN
     Route: 065
  3. LEVETIRACETAM TABLETS USP, 500 MG [Suspect]
     Active Substance: LEVETIRACETAM
     Indication: SEIZURE
     Dosage: 500 MG,UNK,UNKNOWN
     Route: 048
     Dates: start: 201604

REACTIONS (5)
  - Weight increased [Not Recovered/Not Resolved]
  - Tremor [Not Recovered/Not Resolved]
  - Dyskinesia [Not Recovered/Not Resolved]
  - Muscle twitching [Not Recovered/Not Resolved]
  - Asthenia [Not Recovered/Not Resolved]
